FAERS Safety Report 19349703 (Version 1)
Quarter: 2021Q2

REPORT INFORMATION
  Report Type: Spontaneous
  Country: US (occurrence: US)
  Receive Date: 20210601
  Receipt Date: 20210601
  Transmission Date: 20210717
  Serious: Yes (Disabling)
  Sender: FDA-Public Use
  Company Number: None

PATIENT
  Age: 70 Year
  Sex: Female
  Weight: 74.25 kg

DRUGS (3)
  1. ALVESCO [Suspect]
     Active Substance: CICLESONIDE
     Indication: ASTHMA
     Route: 048
  2. QVAR [Concomitant]
     Active Substance: BECLOMETHASONE DIPROPIONATE
  3. VENTOLIN [Concomitant]
     Active Substance: ALBUTEROL SULFATE

REACTIONS (3)
  - Middle insomnia [None]
  - Arthralgia [None]
  - Hypokinesia [None]
